FAERS Safety Report 25241424 (Version 1)
Quarter: 2025Q2

REPORT INFORMATION
  Report Type: Spontaneous
  Country: DE (occurrence: DE)
  Receive Date: 20250425
  Receipt Date: 20250425
  Transmission Date: 20250716
  Serious: Yes (Other)
  Sender: HILL DERMACEUTICALS, INC.
  Company Number: DE-Hill Dermaceuticals, Inc.-2175606

PATIENT
  Age: 79 Year
  Sex: Female
  Weight: 71.00 kg

DRUGS (1)
  1. TOLAK [Suspect]
     Active Substance: FLUOROURACIL
     Indication: Precancerous condition
     Dates: start: 20250308

REACTIONS (4)
  - Angina pectoris [Not Recovered/Not Resolved]
  - Dyspnoea [Not Recovered/Not Resolved]
  - Heart rate increased [Not Recovered/Not Resolved]
  - Blood pressure increased [Not Recovered/Not Resolved]
